FAERS Safety Report 6969242-5 (Version None)
Quarter: 2010Q3

REPORT INFORMATION
  Report Type: 
  Country: None (occurrence: None)
  Receive Date: 20100907
  Receipt Date: 20100826
  Transmission Date: 20110219
  Serious: Yes (Other)
  Sender: FDA-Public Use
  Company Number: CN-PFIZER INC-2010107965

PATIENT

DRUGS (2)
  1. VFEND [Suspect]
  2. GANCICLOVIR [Concomitant]

REACTIONS (3)
  - GASTROINTESTINAL DISORDER [None]
  - VOMITING [None]
  - WHITE BLOOD CELL COUNT DECREASED [None]
